FAERS Safety Report 9420418 (Version 1)
Quarter: 2013Q3

REPORT INFORMATION
  Report Type: Spontaneous
  Country: US (occurrence: US)
  Receive Date: 20130725
  Receipt Date: 20130725
  Transmission Date: 20140515
  Serious: No
  Sender: FDA-Public Use
  Company Number: US-ABBOTT-13P-163-1063757-00

PATIENT
  Age: 45 Year
  Sex: Female
  Weight: 95.34 kg

DRUGS (4)
  1. SYNTHROID [Suspect]
     Indication: BASEDOW^S DISEASE
     Dates: start: 2003
  2. CYTOMEL [Suspect]
     Indication: PRODUCT USED FOR UNKNOWN INDICATION
  3. METFORMIN [Concomitant]
     Indication: PRODUCT USED FOR UNKNOWN INDICATION
  4. LOVAZA [Concomitant]
     Indication: PRODUCT USED FOR UNKNOWN INDICATION

REACTIONS (2)
  - Sluggishness [Recovering/Resolving]
  - Fatigue [Recovering/Resolving]
